FAERS Safety Report 24296173 (Version 1)
Quarter: 2024Q3

REPORT INFORMATION
  Report Type: Spontaneous
  Country: US (occurrence: None)
  Receive Date: 20240909
  Receipt Date: 20240909
  Transmission Date: 20241016
  Serious: No
  Sender: ASTRAZENECA
  Company Number: 2024A197547

PATIENT
  Sex: Male

DRUGS (1)
  1. BYDUREON BCISE [Suspect]
     Active Substance: EXENATIDE

REACTIONS (7)
  - Nodule [Unknown]
  - Mass [Unknown]
  - Pruritus [Unknown]
  - Injection site pain [Unknown]
  - Diarrhoea [Unknown]
  - Nausea [Unknown]
  - Product use issue [Unknown]
